FAERS Safety Report 8003778 (Version 2)
Quarter: 2016Q3

REPORT INFORMATION
  Report Type: Report from Study
  Country: US (occurrence: US)
  Receive Date: 20110623
  Receipt Date: 20160815
  Transmission Date: 20161109
  Serious: Yes (Hospitalization)
  Sender: FDA-Public Use
  Company Number: US-SHIRE-SPV1-2009-01534

PATIENT
  Age: 13 Year
  Sex: Male
  Weight: 30.4 kg

DRUGS (3)
  1. PREDNISOLONE. [Suspect]
     Active Substance: PREDNISOLONE
     Indication: PREMEDICATION
     Dosage: 30 UNK (UNITS NOT REPORTED), OTHER(FOUR TIMES)
     Route: 042
     Dates: start: 20070208
  2. IDURSULFASE [Suspect]
     Active Substance: IDURSULFASE
     Indication: MUCOPOLYSACCHARIDOSIS II
     Dosage: 0.5 MG/KG, 1X/WEEK
     Route: 041
     Dates: start: 20061005
  3. CETRIZINE [Concomitant]
     Active Substance: CETIRIZINE HYDROCHLORIDE
     Indication: PRODUCT USED FOR UNKNOWN INDICATION
     Dosage: 5.0 UNK, OTHER(FOUR TIMES)
     Route: 048
     Dates: start: 20070405

REACTIONS (8)
  - Arthralgia [Recovered/Resolved]
  - Weight bearing difficulty [Recovered/Resolved]
  - Flushing [Unknown]
  - Dizziness [Unknown]
  - Lethargy [Recovered/Resolved]
  - Pyrexia [Recovered/Resolved]
  - Mental status changes [Recovered/Resolved]
  - Anxiety [Recovered/Resolved]

NARRATIVE: CASE EVENT DATE: 200907
